FAERS Safety Report 4536809-3 (Version None)
Quarter: 2004Q4

REPORT INFORMATION
  Report Type: 
  Country: None (occurrence: None)
  Receive Date: 20041220
  Receipt Date: 20041209
  Transmission Date: 20050328
  Serious: Yes (Death, Hospitalization)
  Sender: FDA-Public Use
  Company Number: IT-2004-036384

PATIENT
  Age: 70 Year
  Sex: Male

DRUGS (4)
  1. FLUDARA [Suspect]
     Indication: CHRONIC LYMPHOCYTIC LEUKAEMIA
     Dosage: 40 MG, 1X/DAY, ORAL
     Route: 048
     Dates: start: 20041007, end: 20041010
  2. ENDOXAN ASTA (CYCLOPHOSPHAMIDE) [Suspect]
     Indication: CHRONIC LYMPHOCYTIC LEUKAEMIA
     Dosage: 300 MG, 1X/DAY, ORAL
     Route: 048
     Dates: start: 20041007, end: 20041010
  3. ACYCLOVIR [Suspect]
     Indication: PROPHYLAXIS
     Dosage: SEE IMAGE
     Route: 048
     Dates: start: 20041007, end: 20041116
  4. ACYCLOVIR [Suspect]
     Indication: PROPHYLAXIS
     Dosage: SEE IMAGE
     Route: 048
     Dates: start: 20041118, end: 20041126

REACTIONS (2)
  - STEVENS-JOHNSON SYNDROME [None]
  - TOXIC EPIDERMAL NECROLYSIS [None]
